FAERS Safety Report 15544397 (Version 5)
Quarter: 2021Q2

REPORT INFORMATION
  Report Type: Spontaneous
  Country: AU (occurrence: AU)
  Receive Date: 20181024
  Receipt Date: 20210408
  Transmission Date: 20210716
  Serious: Yes (Death, Other)
  Sender: FDA-Public Use
  Company Number: AU-BIOGEN-2018BI00648609

PATIENT
  Age: 40 Year
  Sex: Female

DRUGS (2)
  1. TYSABRI [Suspect]
     Active Substance: NATALIZUMAB
     Indication: MULTIPLE SCLEROSIS
     Dosage: INFUSED OVER 1 HOUR
     Route: 050
     Dates: start: 200803, end: 201809
  2. TYSABRI [Suspect]
     Active Substance: NATALIZUMAB
     Route: 065
     Dates: start: 201909, end: 201910

REACTIONS (3)
  - Mobility decreased [Unknown]
  - Metastatic squamous cell carcinoma [Fatal]
  - Angioedema [Unknown]

NARRATIVE: CASE EVENT DATE: 201808
